FAERS Safety Report 9123607 (Version 1)
Quarter: 2013Q1

REPORT INFORMATION
  Report Type: Spontaneous
  Country: AT (occurrence: None)
  Receive Date: 20130131
  Receipt Date: 20130131
  Transmission Date: 20140127
  Serious: Yes (Hospitalization, Other)
  Sender: FDA-Public Use
  Company Number: FK201300182

PATIENT
  Age: 26 Year
  Sex: Male
  Weight: 115 kg

DRUGS (1)
  1. FUROSEMIDE (MANUFACTURER UNKNOWN) (FUROSEMIDE) (FUROSEMIDE) [Suspect]
     Indication: OFF LABEL USE
     Dosage: 2X80 MG 24 + 48 HRS PRIOR TO COMPETITION, ORAL
     Route: 048

REACTIONS (16)
  - Paralysis [None]
  - Hypokalaemia [None]
  - Muscle spasms [None]
  - Palpitations [None]
  - Nocturia [None]
  - Weight decreased [None]
  - Fatigue [None]
  - Hyperglycaemia [None]
  - Hyperlactacidaemia [None]
  - Blood phosphorus decreased [None]
  - Aspartate aminotransferase increased [None]
  - Alanine aminotransferase increased [None]
  - Blood lactate dehydrogenase increased [None]
  - Blood creatine phosphokinase increased [None]
  - Troponin T increased [None]
  - Sinus tachycardia [None]
